FAERS Safety Report 9827991 (Version 1)
Quarter: 2014Q1

REPORT INFORMATION
  Report Type: Spontaneous
  Country: DE (occurrence: DE)
  Receive Date: 20140117
  Receipt Date: 20140117
  Transmission Date: 20141002
  Serious: Yes (Other)
  Sender: FDA-Public Use
  Company Number: DE-BAYER-2014-004300

PATIENT
  Sex: Female

DRUGS (2)
  1. CYCLO-PROGYNOVA N [Suspect]
     Dosage: 1 DF, QD
     Route: 048
  2. MIRENA [Suspect]
     Indication: ADENOMYOSIS
     Dosage: 20 MCG/24HR, CONT
     Route: 015
     Dates: start: 20130801

REACTIONS (3)
  - Retinal disorder [Not Recovered/Not Resolved]
  - Visual impairment [Recovered/Resolved]
  - Off label use [None]
